FAERS Safety Report 14620342 (Version 2)
Quarter: 2018Q4

REPORT INFORMATION
  Report Type: Spontaneous
  Country: GB (occurrence: GB)
  Receive Date: 20180309
  Receipt Date: 20181128
  Transmission Date: 20190204
  Serious: Yes (Other)
  Sender: FDA-Public Use
  Company Number: GB-SA-2018SA061268

PATIENT
  Age: 71 Year
  Sex: Female

DRUGS (2)
  1. ENOXAPARIN SODIUM. [Suspect]
     Active Substance: ENOXAPARIN SODIUM
     Indication: PROPHYLAXIS
     Dosage: UNK UNK,UNK
     Route: 065
     Dates: start: 20160809, end: 20160817
  2. APIXABAN [Suspect]
     Active Substance: APIXABAN
     Dosage: 5 MG,QD
     Route: 065
     Dates: start: 20160809, end: 20160818

REACTIONS (3)
  - Acute kidney injury [Unknown]
  - Contraindicated product administered [Unknown]
  - Haematuria [Unknown]
